FAERS Safety Report 4798778-0 (Version None)
Quarter: 2005Q4

REPORT INFORMATION
  Report Type: 
  Country: None (occurrence: None)
  Receive Date: 20051014
  Receipt Date: 20051004
  Transmission Date: 20060501
  Serious: Yes (Other)
  Sender: FDA-Public Use
  Company Number: US-MERCK-0510USA03777

PATIENT
  Sex: Male

DRUGS (1)
  1. VIOXX [Suspect]
     Route: 047
     Dates: start: 19990101, end: 20040101

REACTIONS (4)
  - CHEST PAIN [None]
  - CORONARY ARTERY DISEASE [None]
  - MYOCARDIAL ISCHAEMIA [None]
  - VASCULAR OCCLUSION [None]
